FAERS Safety Report 5368025-X (Version None)
Quarter: 2007Q2

REPORT INFORMATION
  Report Type: 
  Country: None (occurrence: None)
  Receive Date: 20070622
  Receipt Date: 20070611
  Transmission Date: 20071010
  Serious: Yes (Other)
  Sender: FDA-Public Use
  Company Number: FR-PFIZER INC-2007048632

PATIENT
  Age: 29 Year
  Sex: Male

DRUGS (7)
  1. NEURONTIN [Suspect]
  2. MANTADIX [Concomitant]
  3. BACLOFEN [Concomitant]
  4. PERMIXON [Concomitant]
  5. DEROXAT [Concomitant]
  6. COPAXONE [Concomitant]
  7. LEVOTONINE [Concomitant]

REACTIONS (4)
  - NAUSEA [None]
  - NYSTAGMUS [None]
  - PARAESTHESIA [None]
  - VERTIGO [None]
